FAERS Safety Report 16375058 (Version 3)
Quarter: 2020Q2

REPORT INFORMATION
  Report Type: Report from Study
  Country: None (occurrence: US)
  Receive Date: 20190531
  Receipt Date: 20200415
  Transmission Date: 20200713
  Serious: Yes (Other)
  Sender: FDA-Public Use
  Company Number: US-ABBVIE-19K-163-2717487-00

PATIENT
  Age: 63 Year
  Sex: Female

DRUGS (3)
  1. HUMIRA [Suspect]
     Active Substance: ADALIMUMAB
     Indication: RHEUMATOID ARTHRITIS
     Route: 058
     Dates: start: 20190218
  2. FOLIC ACID. [Concomitant]
     Active Substance: FOLIC ACID
     Indication: PRODUCT USED FOR UNKNOWN INDICATION
  3. METHOTREXATE. [Concomitant]
     Active Substance: METHOTREXATE
     Indication: PRODUCT USED FOR UNKNOWN INDICATION

REACTIONS (19)
  - Cubital tunnel syndrome [Unknown]
  - Anxiety [Unknown]
  - Fatigue [Recovering/Resolving]
  - Osteoarthritis [Unknown]
  - Headache [Unknown]
  - Pain in extremity [Recovering/Resolving]
  - Injection site rash [Recovered/Resolved]
  - Carpal tunnel syndrome [Unknown]
  - Discomfort [Recovering/Resolving]
  - Insomnia [Unknown]
  - Arthralgia [Recovering/Resolving]
  - Joint stiffness [Recovering/Resolving]
  - Musculoskeletal stiffness [Recovering/Resolving]
  - Peripheral swelling [Recovering/Resolving]
  - Injection site erythema [Unknown]
  - Limb discomfort [Recovering/Resolving]
  - Loss of personal independence in daily activities [Unknown]
  - Joint swelling [Recovering/Resolving]
  - Back disorder [Unknown]

NARRATIVE: CASE EVENT DATE: 2019
